FAERS Safety Report 4504404-8 (Version None)
Quarter: 2004Q4

REPORT INFORMATION
  Report Type: 
  Country: None (occurrence: None)
  Receive Date: 20041117
  Receipt Date: 20041117
  Transmission Date: 20050328
  Serious: Yes (Hospitalization)
  Sender: FDA-Public Use
  Company Number: None

PATIENT
  Age: 53 Year
  Sex: Male

DRUGS (9)
  1. OXYCODONE HCL [Suspect]
     Indication: PAIN
     Dosage: 5MG Q6H PRN AND 10MG BID (SA)
     Dates: start: 20010201
  2. NPH INSULIN [Concomitant]
  3. PREDNISONE [Concomitant]
  4. LOMOTIL [Concomitant]
  5. CALCITONIN [Concomitant]
  6. FOLIC ACID [Concomitant]
  7. OMEPRAZOLE [Concomitant]
  8. THIAMINE [Concomitant]
  9. CORGARD [Concomitant]

REACTIONS (1)
  - MENTAL STATUS CHANGES [None]
